FAERS Safety Report 4710740-2 (Version None)
Quarter: 2005Q3

REPORT INFORMATION
  Report Type: 
  Country: None (occurrence: None)
  Receive Date: 20050707
  Receipt Date: 20050622
  Transmission Date: 20060218
  Serious: Yes (Other)
  Sender: FDA-Public Use
  Company Number: T05-GER-02286-01

PATIENT
  Age: 39 Year
  Sex: Female

DRUGS (2)
  1. CIPRALEX (ESCITALOPRAM) [Suspect]
     Dosage: 10 MG QD PO
     Route: 048
     Dates: start: 20040622
  2. PAROXETINE HCL [Suspect]
     Dosage: 10 MG QD PO
     Route: 048
     Dates: start: 20040515, end: 20040622

REACTIONS (5)
  - ABDOMINAL PAIN [None]
  - CIRCULATORY COLLAPSE [None]
  - DIZZINESS [None]
  - NAUSEA [None]
  - TREATMENT NONCOMPLIANCE [None]
